FAERS Safety Report 13705727 (Version 1)
Quarter: 2017Q2

REPORT INFORMATION
  Report Type: Spontaneous
  Country: BE (occurrence: BE)
  Receive Date: 20170630
  Receipt Date: 20170630
  Transmission Date: 20170830
  Serious: Yes (Other)
  Sender: FDA-Public Use
  Company Number: BE-BAYER-2017-111491

PATIENT
  Age: 33 Year
  Sex: Female
  Weight: 70 kg

DRUGS (1)
  1. MIRENA [Suspect]
     Active Substance: LEVONORGESTREL
     Dosage: 20 MCG/24HR, CONT
     Route: 015
     Dates: start: 2008, end: 2016

REACTIONS (21)
  - Suicidal ideation [Recovering/Resolving]
  - Decreased appetite [Recovering/Resolving]
  - Depression [Recovered/Resolved with Sequelae]
  - Memory impairment [Recovering/Resolving]
  - Nausea [Recovering/Resolving]
  - Hypersomnia [Recovering/Resolving]
  - Disturbance in attention [Recovering/Resolving]
  - Feeling of despair [Recovered/Resolved with Sequelae]
  - Migraine [Recovering/Resolving]
  - Irritability [Recovering/Resolving]
  - Decreased interest [Recovered/Resolved with Sequelae]
  - Back pain [Recovered/Resolved with Sequelae]
  - Weight decreased [Recovering/Resolving]
  - Crying [Recovered/Resolved with Sequelae]
  - Alopecia [Recovered/Resolved with Sequelae]
  - Feeling guilty [Recovered/Resolved with Sequelae]
  - Weight increased [Recovering/Resolving]
  - Fear [Recovering/Resolving]
  - Visual impairment [Recovering/Resolving]
  - Headache [Recovering/Resolving]
  - Fluid retention [Recovering/Resolving]

NARRATIVE: CASE EVENT DATE: 2013
